FAERS Safety Report 17220330 (Version 1)
Quarter: 2019Q4

REPORT INFORMATION
  Report Type: Spontaneous
  Country: IL (occurrence: IL)
  Receive Date: 20191231
  Receipt Date: 20191231
  Transmission Date: 20200122
  Serious: Yes (Other)
  Sender: FDA-Public Use
  Company Number: IL-ASTRAZENECA-2019SF87579

PATIENT
  Age: 70 Year
  Sex: Male

DRUGS (1)
  1. TAGRISSO [Suspect]
     Active Substance: OSIMERTINIB
     Indication: EGFR STATUS ASSAY
     Dosage: 80.0MG UNKNOWN
     Route: 048
     Dates: start: 20191001, end: 20191210

REACTIONS (2)
  - Drug ineffective [Unknown]
  - Disease progression [Unknown]
